FAERS Safety Report 13908238 (Version 1)
Quarter: 2017Q3

REPORT INFORMATION
  Report Type: Spontaneous
  Country: AU (occurrence: AU)
  Receive Date: 20170825
  Receipt Date: 20170825
  Transmission Date: 20171127
  Serious: Yes (Hospitalization, Other)
  Sender: FDA-Public Use
  Company Number: AU-IMPAX LABORATORIES, INC-2017-IPXL-01749

PATIENT
  Age: 59 Year
  Sex: Male

DRUGS (7)
  1. VENLAFAXINE [Suspect]
     Active Substance: VENLAFAXINE HYDROCHLORIDE
     Indication: SUICIDAL IDEATION
     Dosage: 150 MG, 1 /DAY
     Route: 048
  2. FLUDROCORTISONE [Concomitant]
     Active Substance: FLUDROCORTISONE
     Indication: ORTHOSTATIC HYPOTENSION
     Dosage: UNK
     Route: 065
  3. MIRTAZAPINE ODT [Suspect]
     Active Substance: MIRTAZAPINE
     Indication: SUICIDAL IDEATION
     Dosage: 15 MG, 1 /DAY
     Route: 048
  4. PRAMIPEXOLE. [Suspect]
     Active Substance: PRAMIPEXOLE
     Indication: SUICIDAL IDEATION
     Dosage: 0.125 MG, DAILY
     Route: 048
  5. MIRTAZAPINE ODT [Suspect]
     Active Substance: MIRTAZAPINE
     Indication: ORTHOSTATIC HYPOTENSION
     Dosage: 360 MG, SINGLE
     Route: 048
  6. PRAMIPEXOLE. [Suspect]
     Active Substance: PRAMIPEXOLE
     Indication: RESTLESS LEGS SYNDROME
     Dosage: 3 MG, SINGLE
     Route: 048
  7. VENLAFAXINE [Suspect]
     Active Substance: VENLAFAXINE HYDROCHLORIDE
     Indication: ORTHOSTATIC HYPOTENSION
     Dosage: 2250 MG, SINGLE
     Route: 048

REACTIONS (13)
  - Urinary retention [Recovered/Resolved]
  - Dizziness postural [Recovering/Resolving]
  - Hypervigilance [Recovering/Resolving]
  - Feeling jittery [Recovering/Resolving]
  - Sinus tachycardia [Recovering/Resolving]
  - Suicide attempt [Recovering/Resolving]
  - Intentional overdose [Recovering/Resolving]
  - Agitation [Recovered/Resolved]
  - Disturbance in attention [Recovering/Resolving]
  - Pressure of speech [Recovering/Resolving]
  - Ataxia [Recovering/Resolving]
  - Hallucination, visual [Recovered/Resolved]
  - Myoclonus [Recovered/Resolved]
